FAERS Safety Report 10957000 (Version 1)
Quarter: 2015Q1

REPORT INFORMATION
  Report Type: Spontaneous
  Country: US (occurrence: US)
  Receive Date: 20150326
  Receipt Date: 20150326
  Transmission Date: 20150721
  Serious: No
  Sender: FDA-Public Use
  Company Number: US-PFIZER INC-2015089444

PATIENT
  Sex: Male

DRUGS (2)
  1. DICLOFENAC [Suspect]
     Active Substance: DICLOFENAC
     Dosage: UNK
  2. PHENYLALANINE [Suspect]
     Active Substance: PHENYLALANINE
     Dosage: UNK

REACTIONS (1)
  - Somnolence [Unknown]
